FAERS Safety Report 10079416 (Version 1)
Quarter: 2014Q2

REPORT INFORMATION
  Report Type: Report from Study
  Country: BR (occurrence: BR)
  Receive Date: 20140415
  Receipt Date: 20140415
  Transmission Date: 20141212
  Serious: Yes (Death, Other)
  Sender: FDA-Public Use
  Company Number: PHHY2014BR045719

PATIENT
  Sex: Female
  Weight: 36 kg

DRUGS (1)
  1. ACLASTA [Suspect]
     Indication: OSTEOPOROSIS
     Dosage: UNK (ONCE, ANNUALLY)
     Route: 042
     Dates: start: 2013, end: 2013

REACTIONS (3)
  - Dementia Alzheimer^s type [Fatal]
  - Femur fracture [Unknown]
  - Fall [Unknown]
